FAERS Safety Report 25860183 (Version 1)
Quarter: 2025Q3

REPORT INFORMATION
  Report Type: Spontaneous
  Country: US (occurrence: US)
  Receive Date: 20250929
  Receipt Date: 20250929
  Transmission Date: 20251021
  Serious: Yes (Hospitalization)
  Sender: Unknown Manufacturer
  Company Number: US-NEURELIS-USNEU25000218

PATIENT

DRUGS (4)
  1. VALTOCO [Suspect]
     Active Substance: DIAZEPAM
     Indication: Seizure
     Route: 045
     Dates: start: 20250905
  2. VIMPAT [Concomitant]
     Active Substance: LACOSAMIDE
     Indication: Seizure
     Route: 065
  3. OXCARBAZEPINE [Concomitant]
     Active Substance: OXCARBAZEPINE
     Indication: Seizure
     Route: 065
  4. XCOPRI [Concomitant]
     Active Substance: CENOBAMATE
     Indication: Seizure
     Route: 065

REACTIONS (1)
  - Urinary tract infection [Not Recovered/Not Resolved]

NARRATIVE: CASE EVENT DATE: 20250905
